FAERS Safety Report 6923502-2 (Version None)
Quarter: 2010Q3

REPORT INFORMATION
  Report Type: 
  Country: None (occurrence: None)
  Receive Date: 20100813
  Receipt Date: 20100804
  Transmission Date: 20110219
  Serious: No
  Sender: FDA-Public Use
  Company Number: B0635619A

PATIENT
  Sex: Female
  Weight: 51 kg

DRUGS (7)
  1. RELENZA [Suspect]
     Indication: INFLUENZA
     Dosage: 20MG PER DAY
     Route: 055
     Dates: start: 20100103, end: 20100107
  2. MAGMITT [Concomitant]
     Indication: CONSTIPATION
     Dosage: 6IUAX PER DAY
     Route: 048
     Dates: start: 20091124
  3. LAXOBERON [Concomitant]
     Indication: CONSTIPATION
     Dosage: 1ML PER DAY
     Route: 048
     Dates: start: 20091222
  4. CALONAL [Concomitant]
     Indication: HEADACHE
     Dosage: 2IUAX PER DAY
     Route: 048
     Dates: start: 20091222
  5. DUVADILAN [Concomitant]
     Dosage: 3IUAX PER DAY
     Route: 048
     Dates: start: 20100511, end: 20100525
  6. CLOTRIMAZOLE [Concomitant]
     Indication: CANDIDIASIS
     Route: 061
     Dates: start: 20100624
  7. PROSTAGLANDIN E2 [Concomitant]
     Indication: UTERINE HYPOTONUS
     Dosage: 6IUAX PER DAY
     Route: 048
     Dates: start: 20100705, end: 20100705

REACTIONS (2)
  - DELIVERY [None]
  - DRUG EXPOSURE DURING PREGNANCY [None]
